FAERS Safety Report 9289083 (Version 3)
Quarter: 2013Q3

REPORT INFORMATION
  Report Type: Spontaneous
  Country: US (occurrence: US)
  Receive Date: 20130514
  Receipt Date: 20130708
  Transmission Date: 20140515
  Serious: No
  Sender: FDA-Public Use
  Company Number: US-PFIZER INC-2013147945

PATIENT
  Age: 74 Year
  Sex: Male

DRUGS (3)
  1. LIPITOR [Suspect]
     Indication: BLOOD CHOLESTEROL INCREASED
     Dosage: 20 MG, 1X/DAY AT NIGHT
     Route: 048
  2. LIPITOR [Suspect]
     Dosage: 40 MG, 1X/DAY AT NIGHT
     Route: 048
  3. LIPITOR [Suspect]
     Dosage: 80 MG, 1X/DAY AT NIGHT
     Route: 048
     Dates: start: 2003

REACTIONS (4)
  - Myalgia [Not Recovered/Not Resolved]
  - Pain [Not Recovered/Not Resolved]
  - Pain in extremity [Recovered/Resolved with Sequelae]
  - Muscular weakness [Unknown]
